FAERS Safety Report 20205169 (Version 1)
Quarter: 2021Q4

REPORT INFORMATION
  Report Type: Spontaneous
  Country: US (occurrence: None)
  Receive Date: 20211220
  Receipt Date: 20211220
  Transmission Date: 20220303
  Serious: Yes (Death)
  Sender: FDA-Public Use
  Company Number: US-Emmaus Medical, Inc.-EMM202112-000212

PATIENT
  Age: 40 Year
  Sex: Female

DRUGS (1)
  1. ENDARI [Suspect]
     Active Substance: GLUTAMINE
     Indication: Sickle cell disease
     Dosage: 5 GM
     Route: 048
     Dates: start: 20210803, end: 20211208

REACTIONS (1)
  - Death [Fatal]

NARRATIVE: CASE EVENT DATE: 20211208
